FAERS Safety Report 7636003-3 (Version None)
Quarter: 2011Q3

REPORT INFORMATION
  Report Type: 
  Country: None (occurrence: None)
  Receive Date: 20110726
  Receipt Date: 20110713
  Transmission Date: 20111222
  Serious: Yes (Other)
  Sender: FDA-Public Use
  Company Number: US-ROCHE-751993

PATIENT
  Sex: Female
  Weight: 40.8 kg

DRUGS (2)
  1. ACCUTANE [Suspect]
     Route: 065
     Dates: end: 19860101
  2. ACCUTANE [Suspect]
     Route: 065
     Dates: start: 19820601, end: 19850101

REACTIONS (10)
  - BIPOLAR DISORDER [None]
  - DEPRESSION [None]
  - GASTROINTESTINAL INJURY [None]
  - OSTEOPENIA [None]
  - OSTEOPOROSIS [None]
  - CROHN'S DISEASE [None]
  - ATTENTION DEFICIT/HYPERACTIVITY DISORDER [None]
  - BLOOD TRIGLYCERIDES INCREASED [None]
  - ASPARTATE AMINOTRANSFERASE INCREASED [None]
  - ILEUS [None]
